FAERS Safety Report 11478198 (Version 1)
Quarter: 2015Q3

REPORT INFORMATION
  Report Type: Spontaneous
  Country: US (occurrence: US)
  Receive Date: 20150909
  Receipt Date: 20150909
  Transmission Date: 20151125
  Serious: No
  Sender: FDA-Public Use
  Company Number: US-JAZZ-2014-US-010525

PATIENT
  Age: 34 Year
  Sex: Female
  Weight: 46.71 kg

DRUGS (4)
  1. XYREM [Suspect]
     Active Substance: SODIUM OXYBATE
     Indication: CATAPLEXY
     Dosage: 3.75 G, BID
     Route: 048
     Dates: start: 20140721, end: 201501
  2. XYREM [Suspect]
     Active Substance: SODIUM OXYBATE
     Dosage: 3.75 G, BID
     Route: 048
     Dates: start: 2015
  3. XYREM [Suspect]
     Active Substance: SODIUM OXYBATE
     Indication: NARCOLEPSY
     Dosage: 3 G, BID
     Route: 048
     Dates: start: 201406, end: 20140720
  4. XYREM [Suspect]
     Active Substance: SODIUM OXYBATE
     Dosage: DOSE ADJUSTMENTS
     Route: 048

REACTIONS (8)
  - Upper-airway cough syndrome [Not Recovered/Not Resolved]
  - Weight decreased [Not Recovered/Not Resolved]
  - Wrong technique in product usage process [Unknown]
  - Hyperphagia [Unknown]
  - Hypersensitivity [Not Recovered/Not Resolved]
  - Cough [Not Recovered/Not Resolved]
  - Seasonal allergy [Not Recovered/Not Resolved]
  - Vomiting [Unknown]

NARRATIVE: CASE EVENT DATE: 20140721
